FAERS Safety Report 19256938 (Version 1)
Quarter: 2021Q2

REPORT INFORMATION
  Report Type: Spontaneous
  Country: ES (occurrence: ES)
  Receive Date: 20210514
  Receipt Date: 20210514
  Transmission Date: 20210717
  Serious: Yes (Other)
  Sender: FDA-Public Use
  Company Number: ES-AUROBINDO-AUR-APL-2021-019990

PATIENT
  Age: 9 Decade
  Sex: Male
  Weight: 80 kg

DRUGS (6)
  1. PREDNISOLONE. [Suspect]
     Active Substance: PREDNISOLONE
     Indication: PLASMA CELL MYELOMA
     Dosage: UNK
     Route: 065
  2. MELPHALAN. [Suspect]
     Active Substance: MELPHALAN
     Indication: PLASMA CELL MYELOMA
     Dosage: UNK
     Route: 065
  3. DARATUMUMAB [Suspect]
     Active Substance: DARATUMUMAB
     Dosage: 8.56 MILLIGRAM/KILOGRAM
     Route: 058
  4. VELCADE [Suspect]
     Active Substance: BORTEZOMIB
     Indication: PLASMA CELL MYELOMA
     Dosage: UNK
     Route: 065
  5. DARATUMUMAB [Suspect]
     Active Substance: DARATUMUMAB
     Indication: PLASMA CELL MYELOMA
     Dosage: 22.5 MILLIGRAM/KILOGRAM
     Route: 058
  6. DARATUMUMAB [Suspect]
     Active Substance: DARATUMUMAB
     Dosage: 15.56 MILLIGRAM/KILOGRAM
     Route: 058

REACTIONS (4)
  - Off label use [Unknown]
  - Renal failure [Unknown]
  - Weight decreased [Unknown]
  - Product use issue [Unknown]
